FAERS Safety Report 5748743-1 (Version None)
Quarter: 2008Q2

REPORT INFORMATION
  Report Type: 
  Country: None (occurrence: None)
  Receive Date: 20080521
  Receipt Date: 20080515
  Transmission Date: 20081010
  Serious: Yes (Death)
  Sender: FDA-Public Use
  Company Number: JPI-P-003498

PATIENT
  Sex: Female

DRUGS (1)
  1. XYREM [Suspect]
     Indication: NARCOLEPSY
     Dosage: ORAL
     Route: 048

REACTIONS (1)
  - CEREBRAL HAEMORRHAGE [None]
